FAERS Safety Report 18544587 (Version 2)
Quarter: 2021Q1

REPORT INFORMATION
  Report Type: Report from Study
  Country: BR (occurrence: BR)
  Receive Date: 20201125
  Receipt Date: 20210215
  Transmission Date: 20210419
  Serious: Yes (Other)
  Sender: FDA-Public Use
  Company Number: NVSC2020BR312083

PATIENT
  Age: 75 Year
  Sex: Female

DRUGS (4)
  1. LIPITOR [Concomitant]
     Active Substance: ATORVASTATIN CALCIUM
     Indication: PRODUCT USED FOR UNKNOWN INDICATION
     Route: 065
  2. CONCOR [Concomitant]
     Active Substance: BISOPROLOL FUMARATE
     Indication: PRODUCT USED FOR UNKNOWN INDICATION
     Route: 065
  3. VASTAREL [Concomitant]
     Active Substance: TRIMETAZIDINE DIHYDROCHLORIDE
     Indication: PRODUCT USED FOR UNKNOWN INDICATION
     Route: 065
  4. TEGRETOL [Suspect]
     Active Substance: CARBAMAZEPINE
     Indication: PRODUCT USED FOR UNKNOWN INDICATION
     Dosage: UNK
     Route: 065

REACTIONS (12)
  - Dysphagia [Unknown]
  - Trigeminal neuralgia [Unknown]
  - Foot fracture [Unknown]
  - Fall [Unknown]
  - Myocardial infarction [Unknown]
  - Expired product administered [Unknown]
  - Catheterisation cardiac [Unknown]
  - Bradycardia [Unknown]
  - Cardiac disorder [Unknown]
  - Nervousness [Unknown]
  - Fear [Unknown]
  - Ligament rupture [Unknown]

NARRATIVE: CASE EVENT DATE: 2017
